FAERS Safety Report 7756902-1 (Version None)
Quarter: 2011Q3

REPORT INFORMATION
  Report Type: 
  Country: None (occurrence: None)
  Receive Date: 20110916
  Receipt Date: 20110723
  Transmission Date: 20111222
  Serious: Yes (Other)
  Sender: FDA-Public Use
  Company Number: CA-GLAXOSMITHKLINE-A0938053A

PATIENT
  Age: 70 Year
  Sex: Female
  Weight: 59.5 kg

DRUGS (6)
  1. RABEPRAZOLE SODIUM [Concomitant]
     Indication: GASTRIC DISORDER
     Dates: start: 20100804
  2. ADVAIR DISKUS 100/50 [Suspect]
     Indication: ASTHMA
     Dosage: 1PUFF TWICE PER DAY
     Route: 065
     Dates: start: 20090817
  3. OXEZE TURBUHALER [Concomitant]
     Indication: ASTHMA
     Dosage: 2PUFF FOUR TIMES PER DAY
     Dates: start: 20110720
  4. MELOXICAM [Concomitant]
     Indication: ARTHRITIS
     Dosage: 7.5MG PER DAY
     Dates: start: 20110517
  5. ACTONEL [Concomitant]
     Indication: OSTEOPOROSIS
     Dosage: 150MG WEEKLY
     Dates: start: 20110329
  6. CYMBALTA [Concomitant]
     Indication: AFFECTIVE DISORDER
     Dosage: 60MG PER DAY
     Dates: start: 20100404

REACTIONS (5)
  - DRUG INEFFECTIVE [None]
  - PRODUCT QUALITY ISSUE [None]
  - ASTHMA [None]
  - CHEST PAIN [None]
  - DYSPNOEA [None]
